FAERS Safety Report 18551582 (Version 4)
Quarter: 2025Q2

REPORT INFORMATION
  Report Type: Report from Study
  Country: US (occurrence: US)
  Receive Date: 20201126
  Receipt Date: 20250528
  Transmission Date: 20250716
  Serious: Yes (Other)
  Sender: TAKEDA
  Company Number: US-TAKEDA-US201848034

PATIENT
  Age: 65 Year
  Sex: Female

DRUGS (6)
  1. LANADELUMAB [Suspect]
     Active Substance: LANADELUMAB
     Indication: Immune system disorder
     Dosage: 300 MILLIGRAM, Q4WEEKS
     Dates: start: 20190319
  2. LANADELUMAB [Suspect]
     Active Substance: LANADELUMAB
     Dosage: 300 MILLIGRAM, Q4WEEKS
     Dates: start: 20190320
  3. LANADELUMAB [Suspect]
     Active Substance: LANADELUMAB
     Dosage: 300 MILLIGRAM, Q4WEEKS
     Dates: start: 201903
  4. CINRYZE [Suspect]
     Active Substance: HUMAN C1-ESTERASE INHIBITOR
     Indication: Immune system disorder
  5. CINRYZE [Suspect]
     Active Substance: HUMAN C1-ESTERASE INHIBITOR
  6. CINRYZE [Suspect]
     Active Substance: HUMAN C1-ESTERASE INHIBITOR

REACTIONS (4)
  - Chest injury [Unknown]
  - Weight decreased [Unknown]
  - Treatment noncompliance [Unknown]
  - Muscle strain [Unknown]

NARRATIVE: CASE EVENT DATE: 20201113
